FAERS Safety Report 4775703-X (Version None)
Quarter: 2005Q3

REPORT INFORMATION
  Report Type: 
  Country: None (occurrence: None)
  Receive Date: 20050920
  Receipt Date: 20050920
  Transmission Date: 20060218
  Serious: Yes (Other)
  Sender: FDA-Public Use
  Company Number: None

PATIENT
  Sex: Male

DRUGS (1)
  1. TOBI [Suspect]
     Indication: CYSTIC FIBROSIS
     Dosage: 300MG BID INHAL
     Route: 055
     Dates: start: 20050916, end: 20050916

REACTIONS (7)
  - COUGH [None]
  - DYSPHONIA [None]
  - DYSPNOEA [None]
  - LUNG DISORDER [None]
  - MALAISE [None]
  - PAIN [None]
  - PHARYNGITIS [None]
